FAERS Safety Report 9844097 (Version 2)
Quarter: 2014Q1

REPORT INFORMATION
  Report Type: Report from Study
  Country: AU (occurrence: AU)
  Receive Date: 20140127
  Receipt Date: 20140218
  Transmission Date: 20141002
  Serious: Yes (Other)
  Sender: FDA-Public Use
  Company Number: AU-ROCHE-1336363

PATIENT
  Age: 60 Year
  Sex: Male

DRUGS (9)
  1. ACTEMRA [Suspect]
     Indication: RHEUMATOID ARTHRITIS
     Route: 042
     Dates: start: 20121120
  2. ENDONE [Concomitant]
     Indication: ANALGESIC THERAPY
     Dosage: 5-10 MG
     Route: 048
     Dates: start: 2012
  3. ACTONEL [Concomitant]
     Indication: OSTEOPOROSIS
     Dosage: START 3 WEEKS AGO, ONGOING
     Route: 048
  4. METHOTREXATE [Concomitant]
     Dosage: START 5 MONTHS AGO, ONGOING
     Route: 058
  5. PREDNISONE [Concomitant]
     Dosage: START 2.5 YEARS AGO, ONGOING
     Route: 048
  6. PREDNISONE [Concomitant]
     Dosage: STARTS 2 YEARS AGO, ONGOING
     Route: 048
  7. NEXIUM [Concomitant]
     Dosage: START 2.5 YEARS AGO, ONGOING
     Route: 048
  8. FOLATE [Concomitant]
     Dosage: START 5 MONTHS AGO, ONGOING
     Route: 048
  9. PANADEINE FORTE [Concomitant]
     Indication: ANALGESIC THERAPY
     Dosage: START 2 YEARS AGO, ONGOING.
     Route: 048
     Dates: start: 2012

REACTIONS (1)
  - Cataract [Recovered/Resolved]
